FAERS Safety Report 19662254 (Version 16)
Quarter: 2025Q1

REPORT INFORMATION
  Report Type: Report from Study
  Country: US (occurrence: US)
  Receive Date: 20210805
  Receipt Date: 20250206
  Transmission Date: 20250409
  Serious: Yes (Hospitalization, Other)
  Sender: TAKEDA
  Company Number: US-TAKEDA-US202026382

PATIENT
  Age: 60 Year
  Sex: Female
  Weight: 122 kg

DRUGS (47)
  1. HUMAN IMMUNOGLOBULIN G\HYALURONIDASE RECOMBINANT HUMAN [Suspect]
     Active Substance: HUMAN IMMUNOGLOBULIN G\HYALURONIDASE (HUMAN RECOMBINANT)
     Indication: Primary immunodeficiency syndrome
     Dosage: 50 GRAM, Q4WEEKS
     Dates: start: 20200811
  2. HUMAN IMMUNOGLOBULIN G\HYALURONIDASE RECOMBINANT HUMAN [Suspect]
     Active Substance: HUMAN IMMUNOGLOBULIN G\HYALURONIDASE (HUMAN RECOMBINANT)
     Indication: Immunodeficiency common variable
     Dosage: 50 GRAM, Q4WEEKS
  3. HUMAN IMMUNOGLOBULIN G\HYALURONIDASE RECOMBINANT HUMAN [Suspect]
     Active Substance: HUMAN IMMUNOGLOBULIN G\HYALURONIDASE (HUMAN RECOMBINANT)
     Dosage: 50 GRAM, Q4WEEKS
  4. HUMAN IMMUNOGLOBULIN G\HYALURONIDASE RECOMBINANT HUMAN [Suspect]
     Active Substance: HUMAN IMMUNOGLOBULIN G\HYALURONIDASE (HUMAN RECOMBINANT)
     Dosage: 50 GRAM, MONTHLY
  5. HIZENTRA [Suspect]
     Active Substance: HUMAN IMMUNOGLOBULIN G
     Indication: Product used for unknown indication
  6. SODIUM CHLORIDE [Concomitant]
     Active Substance: SODIUM CHLORIDE
  7. ACETAMINOPHEN [Concomitant]
     Active Substance: ACETAMINOPHEN
  8. ZOLOFT [Concomitant]
     Active Substance: SERTRALINE HYDROCHLORIDE
  9. DILTIAZEM HYDROCHLORIDE [Concomitant]
     Active Substance: DILTIAZEM HYDROCHLORIDE
  10. VITAMIN D [Concomitant]
     Active Substance: VITAMIN D NOS
  11. CARDIZEM [Concomitant]
     Active Substance: DILTIAZEM HYDROCHLORIDE
  12. MECLIZINE HYDROCHLORIDE [Concomitant]
     Active Substance: MECLIZINE HYDROCHLORIDE
  13. VECTICAL [Concomitant]
     Active Substance: CALCITRIOL
  14. TYLENOL [Concomitant]
     Active Substance: ACETAMINOPHEN
  15. EXCEDRIN MIGRAINE [Concomitant]
     Active Substance: ACETAMINOPHEN\ASPIRIN\CAFFEINE
  16. AZATHIOPRINE [Concomitant]
     Active Substance: AZATHIOPRINE
  17. ALBUTEROL SULFATE [Concomitant]
     Active Substance: ALBUTEROL SULFATE
  18. SERTRALINE HYDROCHLORIDE [Concomitant]
     Active Substance: SERTRALINE HYDROCHLORIDE
  19. ASPIRIN [Concomitant]
     Active Substance: ASPIRIN
  20. NEXIUM [Concomitant]
     Active Substance: ESOMEPRAZOLE MAGNESIUM
  21. PROAIR HFA [Concomitant]
     Active Substance: ALBUTEROL SULFATE
  22. LIDOCAINE [Concomitant]
     Active Substance: LIDOCAINE
  23. METFORMIN HYDROCHLORIDE [Concomitant]
     Active Substance: METFORMIN HYDROCHLORIDE
  24. KENALOG [Concomitant]
     Active Substance: TRIAMCINOLONE ACETONIDE
  25. IRON [Concomitant]
     Active Substance: IRON
  26. DIPHENHYDRAMINE HYDROCHLORIDE [Concomitant]
     Active Substance: DIPHENHYDRAMINE HYDROCHLORIDE
  27. BENADRYL [Concomitant]
     Active Substance: DIPHENHYDRAMINE HYDROCHLORIDE
  28. PERFOROMIST [Concomitant]
     Active Substance: FORMOTEROL FUMARATE DIHYDRATE
  29. BETAMETHASONE ACETATE [Concomitant]
     Active Substance: BETAMETHASONE ACETATE
  30. BUDESONIDE [Concomitant]
     Active Substance: BUDESONIDE
  31. TRIAMCINOLONE ACETONIDE [Concomitant]
     Active Substance: TRIAMCINOLONE ACETONIDE
  32. NADOLOL [Concomitant]
     Active Substance: NADOLOL
  33. REGLAN [Concomitant]
     Active Substance: METOCLOPRAMIDE HYDROCHLORIDE
  34. SODIUM CHLORIDE [Concomitant]
     Active Substance: SODIUM CHLORIDE
  35. EPINEPHRINE [Concomitant]
     Active Substance: EPINEPHRINE
  36. Cartia [Concomitant]
  37. VITAMIN D2 [Concomitant]
     Active Substance: ERGOCALCIFEROL
  38. Lmx [Concomitant]
  39. PREDNISONE [Concomitant]
     Active Substance: PREDNISONE
  40. ALBUTEROL [Concomitant]
     Active Substance: ALBUTEROL
  41. METFORMIN [Concomitant]
     Active Substance: METFORMIN HYDROCHLORIDE
  42. MECLIZINE [Concomitant]
     Active Substance: MECLIZINE HYDROCHLORIDE
  43. BETAMETHASONE [Concomitant]
     Active Substance: BETAMETHASONE
  44. PROAIR HFA [Concomitant]
     Active Substance: ALBUTEROL SULFATE
  45. SERTRALINE [Concomitant]
     Active Substance: SERTRALINE HYDROCHLORIDE
  46. TRIAMCINOLONE [Concomitant]
     Active Substance: TRIAMCINOLONE
  47. DILTIAZEM [Concomitant]
     Active Substance: DILTIAZEM

REACTIONS (24)
  - Parainfluenzae virus infection [Recovered/Resolved]
  - Upper limb fracture [Recovered/Resolved]
  - Sinusitis [Recovered/Resolved]
  - Herpes zoster [Recovered/Resolved]
  - Influenza [Recovered/Resolved]
  - Respiratory disorder [Recovered/Resolved]
  - Illness [Recovered/Resolved]
  - Infection [Recovered/Resolved]
  - Drug hypersensitivity [Recovered/Resolved]
  - Infusion site discharge [Recovered/Resolved]
  - Gastroenteritis viral [Recovered/Resolved]
  - Bronchitis [Recovered/Resolved]
  - Palpitations [Recovered/Resolved]
  - Cystitis [Recovered/Resolved]
  - Product supply issue [Recovered/Resolved]
  - Product dose omission issue [Unknown]
  - Vertigo [Recovered/Resolved]
  - Fatigue [Recovering/Resolving]
  - Infusion site swelling [Recovered/Resolved]
  - Infusion site erythema [Recovered/Resolved]
  - Rash [Recovered/Resolved]
  - Product use issue [Unknown]
  - Insurance issue [Recovered/Resolved]
  - Hypersensitivity [Recovered/Resolved]

NARRATIVE: CASE EVENT DATE: 20201018
